FAERS Safety Report 16857421 (Version 4)
Quarter: 2021Q4

REPORT INFORMATION
  Report Type: Spontaneous
  Country: CA (occurrence: CA)
  Receive Date: 20190926
  Receipt Date: 20211119
  Transmission Date: 20220303
  Serious: Yes (Life-Threatening, Hospitalization, Other)
  Sender: FDA-Public Use
  Company Number: CA-009507513-1909CAN010703

PATIENT
  Age: 44 Year
  Sex: Female
  Weight: 69 kg

DRUGS (16)
  1. EMEND [Suspect]
     Active Substance: APREPITANT
     Indication: Premedication
     Dosage: 125 MILLIGRAM
     Route: 048
  2. EMEND [Suspect]
     Active Substance: APREPITANT
     Indication: Antiemetic supportive care
     Dosage: 80 MILLIGRAM, QD
     Route: 048
  3. DEXAMETHASONE [Suspect]
     Active Substance: DEXAMETHASONE
     Indication: Premedication
     Dosage: DOSAGE FORM: NOT SPECIFIED; 4 MILLIGRAM, BID
     Route: 048
  4. DEXAMETHASONE [Suspect]
     Active Substance: DEXAMETHASONE
     Indication: Antiemetic supportive care
     Dosage: DOSAGE FORM: NOT SPECIFIED; 12 MILLIGRAM
     Route: 048
  5. EPIRUBICIN HYDROCHLORIDE [Suspect]
     Active Substance: EPIRUBICIN HYDROCHLORIDE
     Indication: Triple negative breast cancer
     Dosage: 177 MILLIGRAM, CYCLICAL; FORMULATION REPORTED AS SOLUTION INTRAVENOUS
     Route: 042
  6. EPIRUBICIN HYDROCHLORIDE [Suspect]
     Active Substance: EPIRUBICIN HYDROCHLORIDE
     Dosage: DOSAGE FORM: NOT REPORTED; 177 MILLIGRAM, CYCLICAL;
     Route: 065
  7. FLUOROURACIL [Suspect]
     Active Substance: FLUOROURACIL
     Indication: Triple negative breast cancer
     Dosage: DOSAGE FORM: NOT SPECIFIED; 875 MILLIGRAM, CYCLICAL
     Route: 042
  8. FLUOROURACIL [Suspect]
     Active Substance: FLUOROURACIL
     Dosage: DOSAGE FORM: NOT SPECIFIED; 875 MILLIGRAM, CYCLICAL
     Route: 065
  9. METOCLOPRAMIDE [Suspect]
     Active Substance: METOCLOPRAMIDE
     Indication: Antiemetic supportive care
     Dosage: DOSAGE FORM: NOT SPECIFIED; 10 MILLIGRAM, AS REQUIRED
     Route: 048
  10. ONDANSETRON [Suspect]
     Active Substance: ONDANSETRON
     Indication: Premedication
     Dosage: DOSAGE FORM: NOT SPECIFIED; 8 MILLIGRAM
     Route: 048
  11. ONDANSETRON [Suspect]
     Active Substance: ONDANSETRON
     Indication: Antiemetic supportive care
  12. PEGFILGRASTIM [Suspect]
     Active Substance: PEGFILGRASTIM
     Indication: Product used for unknown indication
     Dosage: 6 MILLIGRAM
     Route: 058
  13. CYCLOPHOSPHAMIDE [Suspect]
     Active Substance: CYCLOPHOSPHAMIDE
     Indication: Triple negative breast cancer
     Dosage: 890 MILLIGRAM, Q3W; FORMULATION REPORTED AS POWDER FOR SOLUTION PARENTERAL
     Route: 042
  14. SODIUM CHLORIDE [Suspect]
     Active Substance: SODIUM CHLORIDE
     Indication: Medication dilution
     Dosage: 100 MILLILITER, Q3W
     Route: 042
  15. BETAMETHASONE VALERATE [Concomitant]
     Active Substance: BETAMETHASONE VALERATE
     Dosage: UNK, QD
     Route: 065
  16. COD LIVER OIL [Concomitant]
     Active Substance: COD LIVER OIL
     Dosage: UNK, QD
     Route: 048

REACTIONS (3)
  - Flushing [Recovered/Resolved]
  - Hyponatraemia [Recovered/Resolved]
  - Polydipsia [Recovered/Resolved]
